FAERS Safety Report 17656250 (Version 1)
Quarter: 2020Q2

REPORT INFORMATION
  Report Type: Spontaneous
  Country: US (occurrence: US)
  Receive Date: 20200410
  Receipt Date: 20200410
  Transmission Date: 20200713
  Serious: No
  Sender: FDA-Public Use
  Company Number: US-PERRIGO-19US014584

PATIENT
  Sex: Female
  Weight: 60.77 kg

DRUGS (1)
  1. ACETAMINOPHEN. [Suspect]
     Active Substance: ACETAMINOPHEN
     Indication: ARTHRALGIA
     Dosage: 650 MG, PRN
     Route: 048
     Dates: start: 2016

REACTIONS (1)
  - Underdose [Unknown]

NARRATIVE: CASE EVENT DATE: 2016
